FAERS Safety Report 7893013-9 (Version None)
Quarter: 2011Q4

REPORT INFORMATION
  Report Type: 
  Country: None (occurrence: None)
  Receive Date: 20111104
  Receipt Date: 20111026
  Transmission Date: 20120403
  Serious: Yes (Death)
  Sender: FDA-Public Use
  Company Number: SE-NOVOPROD-338349

PATIENT

DRUGS (4)
  1. ENALAPRIL MALEATE [Concomitant]
     Dates: start: 20070809
  2. METFORMIN HCL [Concomitant]
     Dates: start: 20071108
  3. SELOKEN ZOC/ASA [Concomitant]
     Dates: start: 20070514
  4. VICTOZA [Suspect]
     Indication: TYPE 2 DIABETES MELLITUS
     Dosage: 1.8 MG, UNK
     Route: 065
     Dates: start: 20110111

REACTIONS (1)
  - CEREBRAL HAEMORRHAGE [None]
